FAERS Safety Report 4352684-4 (Version None)
Quarter: 2004Q2

REPORT INFORMATION
  Report Type: 
  Country: None (occurrence: None)
  Receive Date: 20040429
  Receipt Date: 20040416
  Transmission Date: 20050107
  Serious: Yes (Other)
  Sender: FDA-Public Use
  Company Number: 2004-BP-03099YA

PATIENT
  Age: 75 Year
  Sex: Male

DRUGS (8)
  1. HARNAL (TAMSULOSIN) (NR) [Suspect]
     Dosage: 0.2 MG (NR)
     Route: 048
     Dates: start: 20040201
  2. FAMOTIDINE [Concomitant]
  3. TOCOPHERYL NICOTINATE (TOCOPHERYL NICOTINATE) [Concomitant]
  4. BUFFERIN (NR) [Concomitant]
  5. AMLODIPINE BESILATE (AMLODIPINE BESILATE) (NR) [Concomitant]
  6. METILDIGOXIN (NR) [Concomitant]
  7. GLYCERYL TRINITRATE (GLYCERYL TRINITRATE) (NR) [Concomitant]
  8. TORASEMIDE (TORASEMIDE) (NR) [Concomitant]

REACTIONS (4)
  - BLOOD PRESSURE DECREASED [None]
  - DEPRESSED LEVEL OF CONSCIOUSNESS [None]
  - FALL [None]
  - INSOMNIA [None]
